FAERS Safety Report 5627059-8 (Version None)
Quarter: 2008Q1

REPORT INFORMATION
  Report Type: 
  Country: None (occurrence: None)
  Receive Date: 20080116
  Receipt Date: 20070330
  Transmission Date: 20080703
  Serious: Yes (Other)
  Sender: FDA-Public Use
  Company Number: BDI-009308

PATIENT
  Age: 4 Year
  Sex: Female

DRUGS (2)
  1. PROHANCE [Suspect]
     Indication: BRAIN NEOPLASM
     Dosage: 15 ML ONCE SY
     Dates: start: 20070314, end: 20070314
  2. PROHANCE [Suspect]
     Indication: NUCLEAR MAGNETIC RESONANCE IMAGING BRAIN
     Dosage: 15 ML ONCE SY
     Dates: start: 20070314, end: 20070314

REACTIONS (4)
  - CYANOSIS [None]
  - DYSPNOEA [None]
  - SNEEZING [None]
  - THROAT IRRITATION [None]
